FAERS Safety Report 7383269 (Version 3)
Quarter: 2014Q1

REPORT INFORMATION
  Report Type: Spontaneous
  Country: US (occurrence: None)
  Receive Date: 20100412
  Receipt Date: 20140214
  Transmission Date: 20141002
  Serious: Yes (Other)
  Sender: FDA-Public Use
  Company Number: 1000010748

PATIENT
  Age: 72 Year
  Sex: Female

DRUGS (10)
  1. BYSTOLIC [Suspect]
     Indication: PALPITATIONS
     Dosage: 5 MG( 5 MG, 1 IN 1 D), ORAL; 10 MG (10 MG, 1 IN 1 D), ORAL
     Route: 048
     Dates: start: 2008, end: 20091208
  2. WELLBUTRIN [Suspect]
     Indication: DEPRESSION
     Dosage: 5 MG (5 MG, 1 IN 1 D), ORAL; 2.5 MG (2.5 MG, 1 IN 1 D), ORAL
     Route: 048
     Dates: start: 201108, end: 2011
  3. ZOLOFT [Suspect]
     Indication: DEPRESSION
     Dosage: 6.25 MG (6.25 MG, 1 IN 1 D), ORAL; 12.5 MG (12.5 MG, 1 IN 1 D), ORAL; 25 MG (25 MG, 1 IN 1 D), ORAL
     Route: 048
     Dates: start: 20091120, end: 20091121
  4. SYNTHROID (LEVOTHYROXINE SODIUM) (LEVOTHYROXINE SODIUM) [Concomitant]
  5. BUTALBITAL(BUTALBITAL) (BUTALBITAL) [Concomitant]
  6. BLUEBERRY EXTRACT (HERBAL PREPARATION) (HERBAL PREPARATION) [Concomitant]
  7. GINKGO BILOBA (GINKGO BILOBA) (GINKGO BILOBA) [Concomitant]
  8. MULTI-VITAMIN [Concomitant]
  9. CALCIUM WITH VITAMIN D [Concomitant]
  10. FAMOTIDINE (FAMOTIDINE) (FAMOTIDINE) [Concomitant]

REACTIONS (8)
  - Extrasystoles [None]
  - Drug ineffective [None]
  - Asthenia [None]
  - Tremor [None]
  - Atrioventricular block complete [None]
  - Drug interaction [None]
  - Palpitations [None]
  - Dizziness [None]
